FAERS Safety Report 11375081 (Version 2)
Quarter: 2015Q3

REPORT INFORMATION
  Report Type: Spontaneous
  Country: US (occurrence: US)
  Receive Date: 20150813
  Receipt Date: 20150916
  Transmission Date: 20151125
  Serious: No
  Sender: FDA-Public Use
  Company Number: US-ACTELION PHARMACEUTICALS US, INC.-A-US2015-120696

PATIENT
  Age: 34 Year
  Sex: Male
  Weight: 189.2 kg

DRUGS (3)
  1. OPSUMIT [Suspect]
     Active Substance: MACITENTAN
     Indication: PRODUCT USED FOR UNKNOWN INDICATION
     Dosage: 10 MG, UNK
     Route: 048
     Dates: start: 201505
  2. TADALAFIL [Concomitant]
     Active Substance: TADALAFIL
  3. REMODULIN [Suspect]
     Active Substance: TREPROSTINIL
     Indication: PULMONARY HYPERTENSION
     Dosage: 66.5 NG/KG, PER MIN
     Route: 058
     Dates: start: 20130730

REACTIONS (8)
  - Infusion site induration [Not Recovered/Not Resolved]
  - Nasal congestion [Unknown]
  - Wheezing [Unknown]
  - Infusion site pain [Not Recovered/Not Resolved]
  - Injection site swelling [Unknown]
  - Pulmonary arterial hypertension [Not Recovered/Not Resolved]
  - Infusion site bruising [Unknown]
  - Dyspnoea [Unknown]

NARRATIVE: CASE EVENT DATE: 20150604
